FAERS Safety Report 25050475 (Version 2)
Quarter: 2025Q3

REPORT INFORMATION
  Report Type: Spontaneous
  Country: EU (occurrence: EU)
  Receive Date: 20250307
  Receipt Date: 20250902
  Transmission Date: 20251021
  Serious: Yes (Other)
  Sender: AUROBINDO
  Company Number: EU-GSK-FR2024GSK129502

PATIENT
  Age: 74 Year
  Sex: Female
  Weight: 100 kg

DRUGS (5)
  1. CARBOPLATIN [Suspect]
     Active Substance: CARBOPLATIN
     Indication: Cervix neoplasm
     Route: 065
     Dates: start: 20240819
  2. CARBOPLATIN [Suspect]
     Active Substance: CARBOPLATIN
     Indication: Endometrial cancer recurrent
  3. PACLITAXEL [Suspect]
     Active Substance: PACLITAXEL
     Indication: Cervix neoplasm
     Route: 065
     Dates: start: 20240819, end: 20240909
  4. PACLITAXEL [Suspect]
     Active Substance: PACLITAXEL
     Indication: Endometrial cancer recurrent
  5. DOSTARLIMAB [Suspect]
     Active Substance: DOSTARLIMAB
     Indication: Cervix neoplasm
     Route: 065
     Dates: start: 20240819

REACTIONS (3)
  - Malignant neoplasm progression [Unknown]
  - Neuropathy peripheral [Recovered/Resolved]
  - Colon operation [Unknown]

NARRATIVE: CASE EVENT DATE: 20240927
